FAERS Safety Report 7536401-2 (Version None)
Quarter: 2011Q2

REPORT INFORMATION
  Report Type: 
  Country: None (occurrence: None)
  Receive Date: 20110608
  Receipt Date: 20110608
  Transmission Date: 20111010
  Serious: No
  Sender: FDA-Public Use
  Company Number: None

PATIENT
  Sex: Male

DRUGS (1)
  1. COPAXONE [Suspect]
     Indication: MULTIPLE SCLEROSIS
     Dosage: 20MG DAILY SUB-Q
     Route: 058
     Dates: start: 20060101, end: 20110605

REACTIONS (5)
  - INJECTION SITE PAIN [None]
  - INJECTION SITE RASH [None]
  - BURNING SENSATION [None]
  - RASH MACULAR [None]
  - INJECTION SITE SWELLING [None]
